FAERS Safety Report 26177838 (Version 1)
Quarter: 2025Q4

REPORT INFORMATION
  Report Type: Spontaneous
  Country: JP (occurrence: JP)
  Receive Date: 20251219
  Receipt Date: 20251219
  Transmission Date: 20260117
  Serious: Yes (Other)
  Sender: ASTELLAS
  Company Number: JP-ASTELLAS-2025-AER-069752

PATIENT
  Age: 7 Year
  Sex: Female
  Weight: 20 kg

DRUGS (11)
  1. PROGRAF [Suspect]
     Active Substance: TACROLIMUS
     Indication: Prophylaxis against transplant rejection
     Dosage: PRECISION CONTINUOUS DRIP INFUSION
     Route: 042
     Dates: start: 20251115, end: 20251119
  2. PROGRAF [Suspect]
     Active Substance: TACROLIMUS
     Indication: Prophylaxis against transplant rejection
     Route: 048
     Dates: start: 20251120, end: 20251127
  3. PREDNISOLONE [Concomitant]
     Active Substance: PREDNISOLONE
     Indication: Product used for unknown indication
     Route: 048
  4. LANSOPRAZOLE OD Tablets 15mg [Concomitant]
     Indication: Product used for unknown indication
     Route: 048
  5. URSO granules 5% [Concomitant]
     Indication: Product used for unknown indication
     Route: 048
  6. DAIPHEN Granules [Concomitant]
     Indication: Product used for unknown indication
     Route: 048
  7. ACICLOVIR Dry Syrup 80% [Concomitant]
     Indication: Product used for unknown indication
     Route: 048
  8. DIPYRIDAMOLE Powder 12.5% [Concomitant]
     Indication: Product used for unknown indication
     Route: 048
  9. MICAFUNGIN for intravenous infusion 50mg [Concomitant]
     Indication: Product used for unknown indication
     Route: 042
     Dates: start: 20251116, end: 20251212
  10. TAZOPIPE for Combination Intravenous 2.25 [Concomitant]
     Indication: Product used for unknown indication
     Route: 042
     Dates: start: 20251119, end: 20251209
  11. VENOGLOBULIN IH 10% 2.5g [Concomitant]
     Indication: Product used for unknown indication
     Route: 042
     Dates: start: 20251122, end: 20251128

REACTIONS (1)
  - Toxic encephalopathy [Recovered/Resolved]

NARRATIVE: CASE EVENT DATE: 20251125
